FAERS Safety Report 4308239-0 (Version None)
Quarter: 2004Q1

REPORT INFORMATION
  Report Type: 
  Country: None (occurrence: None)
  Receive Date: 20040301
  Receipt Date: 20030919
  Transmission Date: 20041129
  Serious: Yes (Other)
  Sender: FDA-Public Use
  Company Number: US-BRISTOL-MYERS SQUIBB COMPANY-12387585

PATIENT
  Age: 51 Year
  Sex: Female

DRUGS (2)
  1. GLUCOPHAGE [Suspect]
  2. MOBIC [Suspect]

REACTIONS (1)
  - BLOOD GLUCOSE DECREASED [None]
